FAERS Safety Report 4674039-5 (Version None)
Quarter: 2005Q2

REPORT INFORMATION
  Report Type: 
  Country: None (occurrence: None)
  Receive Date: 20050525
  Receipt Date: 20050505
  Transmission Date: 20051028
  Serious: Yes (Death, Hospitalization, Other)
  Sender: FDA-Public Use
  Company Number: FR_050506389

PATIENT
  Age: 61 Year
  Sex: Male

DRUGS (4)
  1. ONCOVIN [Suspect]
     Indication: ACUTE LYMPHOCYTIC LEUKAEMIA
     Dates: start: 20021201
  2. CAELYX (DOXORUBICIN HYDROCHLORIDE) [Concomitant]
  3. CYCLOPHOSPHAMIDE [Concomitant]
  4. CORTICOSTEROIDS NOS [Concomitant]

REACTIONS (14)
  - ACUTE LYMPHOCYTIC LEUKAEMIA [None]
  - APLASIA [None]
  - BLOOD GLUCOSE INCREASED [None]
  - BRONCHIAL INFECTION [None]
  - DIABETES MELLITUS [None]
  - GRANULOCYTE COUNT DECREASED [None]
  - HEPATOMEGALY [None]
  - HYPOALBUMINAEMIA [None]
  - LUNG DISORDER [None]
  - LYMPHADENOPATHY [None]
  - MALIGNANT NEOPLASM PROGRESSION [None]
  - NORMOCHROMIC NORMOCYTIC ANAEMIA [None]
  - OEDEMA PERIPHERAL [None]
  - PLATELET COUNT DECREASED [None]
